FAERS Safety Report 15451379 (Version 2)
Quarter: 2018Q4

REPORT INFORMATION
  Report Type: Spontaneous
  Country: US (occurrence: US)
  Receive Date: 20181001
  Receipt Date: 20181126
  Transmission Date: 20190204
  Serious: Yes (Other)
  Sender: FDA-Public Use
  Company Number: US-PFIZER INC-2018391940

PATIENT
  Age: 17 Year
  Sex: Female

DRUGS (1)
  1. LINEZOLID. [Suspect]
     Active Substance: LINEZOLID
     Indication: STAPHYLOCOCCAL INFECTION
     Dosage: UNK (TWO-WEEK COURSE)
     Route: 042

REACTIONS (3)
  - Post-tussive vomiting [Unknown]
  - Cough [Unknown]
  - Condition aggravated [Unknown]
